FAERS Safety Report 22310680 (Version 3)
Quarter: 2023Q2

REPORT INFORMATION
  Report Type: Spontaneous
  Country: JP (occurrence: None)
  Receive Date: 20230511
  Receipt Date: 20230602
  Transmission Date: 20230722
  Serious: Yes (Death)
  Sender: FDA-Public Use
  Company Number: JP-Merck Healthcare KGaA-9397984

PATIENT
  Sex: Female

DRUGS (1)
  1. BAVENCIO [Suspect]
     Active Substance: AVELUMAB
     Indication: Neuroendocrine carcinoma of the skin
     Route: 041
     Dates: start: 20220214

REACTIONS (3)
  - Pulmonary oedema [Fatal]
  - Respiratory failure [Fatal]
  - Liver disorder [Fatal]

NARRATIVE: CASE EVENT DATE: 20220916
